FAERS Safety Report 7650618-8 (Version None)
Quarter: 2011Q3

REPORT INFORMATION
  Report Type: 
  Country: None (occurrence: None)
  Receive Date: 20110802
  Receipt Date: 20110726
  Transmission Date: 20111222
  Serious: Yes (Life-Threatening, Hospitalization)
  Sender: FDA-Public Use
  Company Number: JP-ASTRAZENECA-2011SE36612

PATIENT
  Age: 83 Year
  Sex: Female
  Weight: 54 kg

DRUGS (6)
  1. EPADEL S [Concomitant]
     Indication: HYPERLIPIDAEMIA
     Route: 048
  2. ZETIA [Concomitant]
     Indication: HYPERLIPIDAEMIA
     Route: 048
  3. CANDESARTAN CILEXETIL AND HYDROCHLOROTHIAZIDE [Suspect]
     Indication: HYPERTENSION
     Dosage: 1 DF DAILY
     Route: 048
     Dates: start: 20101201
  4. ATELEC [Concomitant]
     Indication: HYPERTENSION
     Route: 048
     Dates: start: 20100901
  5. ARICEPT [Concomitant]
     Indication: DEMENTIA
     Route: 048
  6. TSUMURA TOUKAKUJOUKITOU [Concomitant]
     Indication: CONSTIPATION
     Route: 048

REACTIONS (1)
  - HYPOGLYCAEMIA [None]
